FAERS Safety Report 4831266-1 (Version None)
Quarter: 2005Q4

REPORT INFORMATION
  Report Type: 
  Country: None (occurrence: None)
  Receive Date: 20051116
  Receipt Date: 20051103
  Transmission Date: 20060501
  Serious: Yes (Other)
  Sender: FDA-Public Use
  Company Number: HQWYE434507NOV05

PATIENT
  Age: 26 Year
  Sex: Female

DRUGS (1)
  1. EFFEXOR XR [Suspect]
     Dates: start: 20051015, end: 20051030

REACTIONS (3)
  - CONSTIPATION [None]
  - SELF MUTILATION [None]
  - SUICIDAL IDEATION [None]
